FAERS Safety Report 16277652 (Version 1)
Quarter: 2019Q2

REPORT INFORMATION
  Report Type: Spontaneous
  Country: JP (occurrence: JP)
  Receive Date: 20190506
  Receipt Date: 20190506
  Transmission Date: 20190711
  Serious: Yes (Other)
  Sender: FDA-Public Use
  Company Number: JP-PFIZER INC-2019181986

PATIENT

DRUGS (1)
  1. LYRICA [Suspect]
     Active Substance: PREGABALIN
     Indication: PLASTIC SURGERY
     Dosage: UNK

REACTIONS (2)
  - Conjunctival haemorrhage [Unknown]
  - Product use in unapproved indication [Unknown]
